FAERS Safety Report 9545899 (Version 1)
Quarter: 2013Q3

REPORT INFORMATION
  Report Type: Spontaneous
  Country: US (occurrence: US)
  Receive Date: 20130923
  Receipt Date: 20130923
  Transmission Date: 20140515
  Serious: Yes (Other)
  Sender: FDA-Public Use
  Company Number: US-ACTAVIS-2013-16208

PATIENT
  Age: 43 Year
  Sex: Female

DRUGS (5)
  1. TRAMADOL HYDROCHLORIDE (AELLC) [Suspect]
     Indication: PRODUCT USED FOR UNKNOWN INDICATION
     Dosage: UNK
     Route: 048
  2. VALPROIC ACID [Concomitant]
     Indication: BIPOLAR DISORDER
     Dosage: UNK
     Route: 065
  3. GABAPENTIN [Concomitant]
     Indication: BIPOLAR DISORDER
     Dosage: UNK
     Route: 065
  4. BENZTROPINE [Concomitant]
     Indication: PRODUCT USED FOR UNKNOWN INDICATION
     Dosage: UNK
     Route: 065
  5. NICOTINE [Concomitant]
     Indication: PRODUCT USED FOR UNKNOWN INDICATION
     Dosage: UNK
     Route: 065

REACTIONS (3)
  - Stupor [Unknown]
  - Drug screen false positive [Unknown]
  - Overdose [Unknown]
